FAERS Safety Report 5501196-0 (Version None)
Quarter: 2007Q4

REPORT INFORMATION
  Report Type: 
  Country: None (occurrence: None)
  Receive Date: 20071029
  Receipt Date: 20071017
  Transmission Date: 20080405
  Serious: Yes (Other)
  Sender: FDA-Public Use
  Company Number: ES-PFIZER INC-2007086606

PATIENT
  Age: 81 Year
  Sex: Female
  Weight: 72 kg

DRUGS (4)
  1. TRANKIMAZIN [Suspect]
     Indication: ANXIETY
     Dosage: DAILY DOSE:2MG
     Route: 048
  2. AMERIDE [Interacting]
     Indication: HYPERTENSION
     Dosage: TEXT:5/50MG DAILY
     Route: 048
  3. SYSTANE [Interacting]
     Indication: KERATOCONJUNCTIVITIS SICCA
     Dosage: DAILY DOSE:1DROP
     Route: 047
     Dates: start: 20070510, end: 20070601
  4. OMEPRAZOLE [Interacting]
     Indication: PROPHYLAXIS AGAINST GASTROINTESTINAL ULCER
     Route: 048

REACTIONS (4)
  - ANXIETY [None]
  - DRUG INTERACTION [None]
  - DRY EYE [None]
  - HALLUCINATION, VISUAL [None]
